FAERS Safety Report 4439516-0 (Version None)
Quarter: 2004Q3

REPORT INFORMATION
  Report Type: 
  Country: None (occurrence: None)
  Receive Date: 20040901
  Receipt Date: 20040901
  Transmission Date: 20050211
  Serious: Yes (Death, Hospitalization)
  Sender: FDA-Public Use
  Company Number: None

PATIENT
  Sex: Male
  Weight: 78.4723 kg

DRUGS (12)
  1. DIGOXIN [Suspect]
     Indication: ATRIAL FIBRILLATION
     Dosage: 0.25 MG PO QD [PRIOR TO ADMISSION]
     Route: 048
  2. LASIX [Concomitant]
  3. BENICAR [Concomitant]
  4. MONOPRIL [Concomitant]
  5. AMARYL [Concomitant]
  6. COUMADIN [Concomitant]
  7. IMDUR [Concomitant]
  8. COREG [Concomitant]
  9. ASPIRIN [Concomitant]
  10. M.V.I. [Concomitant]
  11. COMBIVENT [Concomitant]
  12. ZOCOR [Concomitant]

REACTIONS (5)
  - CARDIAC FAILURE CONGESTIVE [None]
  - FATIGUE [None]
  - MARKEDLY REDUCED DIETARY INTAKE [None]
  - OEDEMA PERIPHERAL [None]
  - WEIGHT INCREASED [None]
